FAERS Safety Report 21686992 (Version 1)
Quarter: 2022Q4

REPORT INFORMATION
  Report Type: Spontaneous
  Country: US (occurrence: US)
  Receive Date: 20221206
  Receipt Date: 20221206
  Transmission Date: 20230112
  Serious: Yes (Other)
  Sender: FDA-Public Use
  Company Number: US-CHEPLA-2022011675

PATIENT
  Age: 54 Year
  Sex: Male

DRUGS (1)
  1. HYDROXYUREA [Suspect]
     Active Substance: HYDROXYUREA
     Indication: Myelofibrosis

REACTIONS (3)
  - Hypersensitivity vasculitis [Recovered/Resolved]
  - Jejunal ulcer [Recovered/Resolved]
  - Product use in unapproved indication [Recovered/Resolved]
